FAERS Safety Report 5220180-8 (Version None)
Quarter: 2007Q1

REPORT INFORMATION
  Report Type: 
  Country: None (occurrence: None)
  Receive Date: 20061201
  Receipt Date: 20060928
  Transmission Date: 20070707
  Serious: Yes (Other)
  Sender: FDA-Public Use
  Company Number: PHEH2006US12297

PATIENT
  Age: 69 Year
  Sex: Male

DRUGS (1)
  1. LAMISIL [Suspect]
     Indication: NAIL TINEA
     Dosage: 250 MG QD ORAL
     Route: 048
     Dates: start: 20060710, end: 20060825

REACTIONS (4)
  - BLOOD BILIRUBIN INCREASED [None]
  - DYSGEUSIA [None]
  - TONGUE COATED [None]
  - WEIGHT DECREASED [None]
